FAERS Safety Report 5240270-3 (Version None)
Quarter: 2007Q1

REPORT INFORMATION
  Report Type: 
  Country: None (occurrence: None)
  Receive Date: 20070219
  Receipt Date: 20070208
  Transmission Date: 20070707
  Serious: No
  Sender: FDA-Public Use
  Company Number: SI-ELI_LILLY_AND_COMPANY-SI200702001812

PATIENT
  Age: 39 Year
  Sex: Female

DRUGS (2)
  1. OLANZAPINE [Suspect]
     Indication: PSYCHOTIC DISORDER
  2. DORMICUM [Concomitant]
     Dosage: 7.5 MG, UNK

REACTIONS (1)
  - GALACTORRHOEA [None]
